FAERS Safety Report 5913992-6 (Version None)
Quarter: 2008Q4

REPORT INFORMATION
  Report Type: 
  Country: None (occurrence: None)
  Receive Date: 20081009
  Receipt Date: 20080930
  Transmission Date: 20090506
  Serious: Yes (Other)
  Sender: FDA-Public Use
  Company Number: BR-BAYER-200818705LA

PATIENT
  Sex: Female

DRUGS (1)
  1. NEXAVAR [Suspect]
     Indication: HEPATIC CANCER METASTATIC
     Route: 048
     Dates: start: 20080101

REACTIONS (5)
  - GENERAL PHYSICAL HEALTH DETERIORATION [None]
  - PALMAR-PLANTAR ERYTHRODYSAESTHESIA SYNDROME [None]
  - PULMONARY TUBERCULOSIS [None]
  - PYREXIA [None]
  - WEIGHT DECREASED [None]
